FAERS Safety Report 13059796 (Version 1)
Quarter: 2016Q4

REPORT INFORMATION
  Report Type: Report from Study
  Country: None (occurrence: ES)
  Receive Date: 20161223
  Receipt Date: 20161223
  Transmission Date: 20170207
  Serious: Yes (Hospitalization)
  Sender: FDA-Public Use
  Company Number: ES-ABBVIE-16P-144-1818827-00

PATIENT
  Age: 5 Year
  Sex: Female
  Weight: 10.9 kg

DRUGS (3)
  1. SYNAGIS [Suspect]
     Active Substance: PALIVIZUMAB
     Indication: ANTIVIRAL PROPHYLAXIS
     Route: 030
     Dates: start: 20161110, end: 20161110
  2. NUSINERSEN [Concomitant]
     Indication: MUSCLE ATROPHY
     Dates: start: 2011
  3. SYNAGIS [Suspect]
     Active Substance: PALIVIZUMAB
     Route: 030
     Dates: start: 20161201, end: 20161201

REACTIONS (5)
  - Atelectasis [Unknown]
  - Oxygen saturation decreased [Recovered/Resolved]
  - Secretion discharge [Not Recovered/Not Resolved]
  - Vomiting [Unknown]
  - Pyrexia [Recovered/Resolved]

NARRATIVE: CASE EVENT DATE: 20161206
